FAERS Safety Report 7408531-7 (Version None)
Quarter: 2011Q2

REPORT INFORMATION
  Report Type: 
  Country: None (occurrence: None)
  Receive Date: 20110412
  Receipt Date: 20110408
  Transmission Date: 20111010
  Serious: Yes (Hospitalization, Other)
  Sender: FDA-Public Use
  Company Number: SG-PFIZER INC-2011078395

PATIENT
  Age: 53 Year
  Sex: Male

DRUGS (1)
  1. HEPARIN SODIUM [Suspect]

REACTIONS (2)
  - THROMBOCYTOPENIA [None]
  - HEPATITIS [None]
